FAERS Safety Report 7939014-3 (Version None)
Quarter: 2011Q4

REPORT INFORMATION
  Report Type: 
  Country: None (occurrence: None)
  Receive Date: 20111124
  Receipt Date: 20111122
  Transmission Date: 20120403
  Serious: Yes (Other)
  Sender: FDA-Public Use
  Company Number: CN-PFIZER INC-2011286042

PATIENT
  Sex: Male

DRUGS (3)
  1. EFFEXOR XR [Suspect]
     Dosage: 75 MG, DAILY
     Route: 048
  2. EFFEXOR XR [Suspect]
     Dosage: 150 MG, DAILY
     Route: 048
  3. EFFEXOR XR [Suspect]
     Dosage: 37.5 MG, DAILY
     Route: 048

REACTIONS (1)
  - HAEMATOCHEZIA [None]
